FAERS Safety Report 5475844-8 (Version None)
Quarter: 2007Q3

REPORT INFORMATION
  Report Type: 
  Country: None (occurrence: None)
  Receive Date: 20070924
  Receipt Date: 20061024
  Transmission Date: 20080115
  Serious: Yes (Hospitalization)
  Sender: FDA-Public Use
  Company Number: US-JNJFOC-20061006145

PATIENT
  Age: 76 Year
  Sex: Male

DRUGS (2)
  1. DITROPAN XL [Suspect]
     Indication: URINARY INCONTINENCE
     Dosage: 20 MG, 1 IN 1 DAY 15 MG, 1 IN 1 DAY
     Dates: start: 20030101, end: 20060915
  2. DITROPAN XL [Suspect]
     Indication: URINARY RETENTION
     Dosage: 20 MG, 1 IN 1 DAY 15 MG, 1 IN 1 DAY
     Dates: start: 20030101, end: 20060915

REACTIONS (4)
  - BLADDER SPASM [None]
  - DRUG INEFFECTIVE [None]
  - URINARY INCONTINENCE [None]
  - URINARY RETENTION [None]
